FAERS Safety Report 7364395-1 (Version None)
Quarter: 2011Q1

REPORT INFORMATION
  Report Type: 
  Country: None (occurrence: None)
  Receive Date: 20110321
  Receipt Date: 20110309
  Transmission Date: 20110831
  Serious: Yes (Life-Threatening)
  Sender: FDA-Public Use
  Company Number: JP-JNJFOC-20110307086

PATIENT
  Age: 83 Year
  Sex: Female

DRUGS (1)
  1. CRAVIT [Suspect]
     Indication: DIARRHOEA
     Dosage: 500 MG/20 ML
     Route: 041

REACTIONS (3)
  - OFF LABEL USE [None]
  - OXYGEN SATURATION DECREASED [None]
  - PSEUDOMEMBRANOUS COLITIS [None]
